FAERS Safety Report 15997134 (Version 1)
Quarter: 2019Q1

REPORT INFORMATION
  Report Type: Spontaneous
  Country: US (occurrence: US)
  Receive Date: 20190222
  Receipt Date: 20190222
  Transmission Date: 20190418
  Serious: Yes (Other)
  Sender: FDA-Public Use
  Company Number: US-BRISTOL-MYERS SQUIBB COMPANY-BMS-2019-017280

PATIENT
  Age: 62 Year
  Sex: Female

DRUGS (2)
  1. IPILIMUMAB [Suspect]
     Active Substance: IPILIMUMAB
     Indication: UVEAL MELANOMA
     Dosage: 3 MG/KG, UNK
     Route: 065
  2. NIVOLUMAB [Suspect]
     Active Substance: NIVOLUMAB
     Indication: UVEAL MELANOMA
     Dosage: 1 MG/KG, UNK
     Route: 065

REACTIONS (4)
  - Lipase increased [Unknown]
  - Malignant neoplasm progression [Unknown]
  - Myasthenia gravis [Unknown]
  - Transaminases increased [Unknown]
